FAERS Safety Report 6412938-4 (Version None)
Quarter: 2009Q4

REPORT INFORMATION
  Report Type: 
  Country: None (occurrence: None)
  Receive Date: 20091023
  Receipt Date: 20091014
  Transmission Date: 20100525
  Serious: Yes (Hospitalization)
  Sender: FDA-Public Use
  Company Number: BR-GILEAD-2009-0024808

PATIENT
  Sex: Female
  Weight: 56 kg

DRUGS (6)
  1. AMBRISENTAN [Suspect]
     Indication: PULMONARY ARTERIAL HYPERTENSION
     Dates: start: 20051026
  2. DILTIAZEM [Concomitant]
     Dates: start: 20060314, end: 20091010
  3. SPIRONOLACTONE [Concomitant]
     Dates: start: 20051016
  4. WARFARIN SODIUM [Concomitant]
     Dates: start: 20061028
  5. FUROSEMIDE [Concomitant]
     Dates: start: 20060717
  6. ACETAZOLAMIDE [Concomitant]
     Dates: start: 20061028

REACTIONS (1)
  - HYPOTENSION [None]
